FAERS Safety Report 5530705-0 (Version None)
Quarter: 2007Q4

REPORT INFORMATION
  Report Type: 
  Country: None (occurrence: None)
  Receive Date: 20071128
  Receipt Date: 20071128
  Transmission Date: 20080405
  Serious: Yes (Hospitalization)
  Sender: FDA-Public Use
  Company Number: None

PATIENT
  Age: 71 Year
  Sex: Female
  Weight: 71 kg

DRUGS (6)
  1. LEVOFLOXACIN [Suspect]
     Indication: URINARY TRACT INFECTION
     Dosage: 750 MG ONCE IV
     Route: 042
     Dates: start: 20071004
  2. DOCUSATE SODIUM [Concomitant]
  3. FENTANYL [Concomitant]
  4. SLIDING SCALE INSULIN [Concomitant]
  5. LANSOPRAZOLE [Concomitant]
  6. VANCOMYCIN [Concomitant]

REACTIONS (5)
  - DYSPNOEA [None]
  - ELECTROCARDIOGRAM QT PROLONGED [None]
  - HYPERTENSION [None]
  - HYPOXIA [None]
  - VENTRICULAR FIBRILLATION [None]
